FAERS Safety Report 5932615-3 (Version None)
Quarter: 2008Q4

REPORT INFORMATION
  Report Type: 
  Country: None (occurrence: None)
  Receive Date: 20081028
  Receipt Date: 20081017
  Transmission Date: 20090506
  Serious: No
  Sender: FDA-Public Use
  Company Number: US-BAYER-200832999NA

PATIENT
  Age: 25 Year
  Sex: Female
  Weight: 82 kg

DRUGS (1)
  1. YAZ [Suspect]
     Indication: CONTRACEPTION
     Route: 048
     Dates: start: 20080821

REACTIONS (4)
  - BREAST TENDERNESS [None]
  - FATIGUE [None]
  - INSOMNIA [None]
  - NAUSEA [None]
